FAERS Safety Report 7322054-5 (Version None)
Quarter: 2011Q1

REPORT INFORMATION
  Report Type: 
  Country: None (occurrence: None)
  Receive Date: 20110228
  Receipt Date: 20100830
  Transmission Date: 20110831
  Serious: No
  Sender: FDA-Public Use
  Company Number: PHHY2010IT90613

PATIENT
  Age: 46 Year
  Sex: Female

DRUGS (1)
  1. NILOTINIB [Suspect]

REACTIONS (2)
  - CONCOMITANT DISEASE AGGRAVATED [None]
  - ELECTROCARDIOGRAM QT PROLONGED [None]
